FAERS Safety Report 17006998 (Version 1)
Quarter: 2019Q4

REPORT INFORMATION
  Report Type: Spontaneous
  Country: RO (occurrence: RO)
  Receive Date: 20191107
  Receipt Date: 20191107
  Transmission Date: 20200122
  Serious: Yes (Death)
  Sender: FDA-Public Use
  Company Number: RO-ASTRAZENECA-2019SF57771

PATIENT
  Age: 85 Year
  Sex: Male

DRUGS (10)
  1. OLICARD [Concomitant]
     Active Substance: ISOSORBIDE MONONITRATE
  2. FOKUSIN [Concomitant]
     Active Substance: TAMSULOSIN
  3. ASA [Concomitant]
     Active Substance: ASPIRIN
     Indication: STENT PLACEMENT
  4. PREDUCTAL [Concomitant]
     Active Substance: TRIMETAZIDINE DIHYDROCHLORIDE
  5. BRILIQUE [Suspect]
     Active Substance: TICAGRELOR
     Indication: ACUTE MYOCARDIAL INFARCTION
     Route: 048
  6. EMANERA [Concomitant]
     Active Substance: ESOMEPRAZOLE MAGNESIUM
  7. NORVASC [Concomitant]
     Active Substance: AMLODIPINE BESYLATE
  8. BRILIQUE [Suspect]
     Active Substance: TICAGRELOR
     Indication: STENT PLACEMENT
     Route: 048
  9. ASA [Concomitant]
     Active Substance: ASPIRIN
     Indication: ACUTE MYOCARDIAL INFARCTION
  10. SIMVACARD [Concomitant]
     Active Substance: SIMVASTATIN
     Dosage: 20

REACTIONS (1)
  - Death [Fatal]
